FAERS Safety Report 24028083 (Version 1)
Quarter: 2024Q2

REPORT INFORMATION
  Report Type: Spontaneous
  Country: US (occurrence: US)
  Receive Date: 20240628
  Receipt Date: 20240628
  Transmission Date: 20240717
  Serious: No
  Sender: FDA-Public Use
  Company Number: US-TEVA-VS-3211360

PATIENT
  Age: 43 Year
  Sex: Female

DRUGS (3)
  1. RISPERIDONE [Suspect]
     Active Substance: RISPERIDONE
     Indication: Product used for unknown indication
     Dosage: UNKNOWN
     Route: 065
  2. SYNTHROID [Concomitant]
     Active Substance: LEVOTHYROXINE SODIUM
     Route: 065
  3. ABILIFY MAINTENA [Suspect]
     Active Substance: ARIPIPRAZOLE
     Indication: Bipolar I disorder
     Route: 065

REACTIONS (15)
  - Brain fog [Unknown]
  - Headache [Unknown]
  - Feeling abnormal [Unknown]
  - Fatigue [Unknown]
  - Cerebral disorder [Unknown]
  - Insomnia [Unknown]
  - Limb discomfort [Unknown]
  - Somnolence [Unknown]
  - Flushing [Unknown]
  - Chest discomfort [Unknown]
  - Paraesthesia [Unknown]
  - Nervousness [Unknown]
  - Nasopharyngitis [Unknown]
  - Malaise [Unknown]
  - Victim of abuse [Unknown]
